FAERS Safety Report 21663412 (Version 3)
Quarter: 2023Q1

REPORT INFORMATION
  Report Type: Spontaneous
  Country: US (occurrence: None)
  Receive Date: 20221130
  Receipt Date: 20230117
  Transmission Date: 20230418
  Serious: No
  Sender: FDA-Public Use
  Company Number: 2022A364437

PATIENT
  Age: 70 Year
  Sex: Female
  Weight: 59.9 kg

DRUGS (2)
  1. PULMICORT FLEXHALER [Suspect]
     Active Substance: BUDESONIDE
     Indication: Asthma
     Dosage: 180 MCG TWO PUFFS IN THE MORNING AND ONE PUFF IN THE EVENING
     Route: 055
  2. PULMICORT FLEXHALER [Suspect]
     Active Substance: BUDESONIDE
     Indication: Chronic obstructive pulmonary disease
     Dosage: 180 MCG TWO PUFFS IN THE MORNING AND ONE PUFF IN THE EVENING
     Route: 055

REACTIONS (6)
  - Dyspnoea [Unknown]
  - Cough [Unknown]
  - Device malfunction [Unknown]
  - Product use issue [Unknown]
  - Device delivery system issue [Unknown]
  - Device defective [Unknown]
